FAERS Safety Report 20134976 (Version 3)
Quarter: 2022Q3

REPORT INFORMATION
  Report Type: Report from Study
  Country: ES (occurrence: ES)
  Receive Date: 20211201
  Receipt Date: 20220830
  Transmission Date: 20221027
  Serious: Yes (Hospitalization, Other)
  Sender: FDA-Public Use
  Company Number: ES-TAKEDA-2021TUS073524

PATIENT
  Age: 5 Year
  Sex: Female

DRUGS (15)
  1. TEDUGLUTIDE [Suspect]
     Active Substance: TEDUGLUTIDE
     Indication: Short-bowel syndrome
     Dosage: 0.5 MILLIGRAM, QD
     Route: 042
     Dates: start: 20200122, end: 20200413
  2. TEDUGLUTIDE [Suspect]
     Active Substance: TEDUGLUTIDE
     Indication: Short-bowel syndrome
     Dosage: 0.5 MILLIGRAM, QD
     Route: 042
     Dates: start: 20200122, end: 20200413
  3. TEDUGLUTIDE [Suspect]
     Active Substance: TEDUGLUTIDE
     Indication: Short-bowel syndrome
     Dosage: 0.5 MILLIGRAM, QD
     Route: 042
     Dates: start: 20200122, end: 20200413
  4. TEDUGLUTIDE [Suspect]
     Active Substance: TEDUGLUTIDE
     Indication: Short-bowel syndrome
     Dosage: 0.5 MILLIGRAM, QD
     Route: 042
     Dates: start: 20200122, end: 20200413
  5. PREDNISOLONE STEAGLATE [Concomitant]
     Active Substance: PREDNISOLONE STEAGLATE
     Indication: Duodenitis
     Dosage: 0.50 MILLILITER, QD
     Route: 048
     Dates: start: 20210405, end: 20210412
  6. PREDNISOLONE STEAGLATE [Concomitant]
     Active Substance: PREDNISOLONE STEAGLATE
     Dosage: 1 MILLILITER
     Route: 048
     Dates: start: 20210329, end: 20210404
  7. PREDNISOLONE STEAGLATE [Concomitant]
     Active Substance: PREDNISOLONE STEAGLATE
     Dosage: 1.50 MILLILITER
     Route: 048
     Dates: start: 20210322, end: 20210328
  8. PREDNISOLONE STEAGLATE [Concomitant]
     Active Substance: PREDNISOLONE STEAGLATE
     Dosage: 2 MILLILITER
     Route: 048
     Dates: start: 20210316, end: 20210321
  9. PREDNISONE [Concomitant]
     Active Substance: PREDNISONE
     Indication: Product used for unknown indication
     Dosage: 20.00 MILLIGRAM, QD
     Route: 048
     Dates: start: 20211118
  10. ENOXAPARIN SODIUM [Concomitant]
     Active Substance: ENOXAPARIN SODIUM
     Indication: Thrombosis prophylaxis
     Dosage: 20.00 MILLIGRAM, QD
     Route: 058
     Dates: start: 20211015
  11. VALGANCICLOVIR [Concomitant]
     Active Substance: VALGANCICLOVIR
     Indication: Prophylaxis
     Dosage: 4.00 MILLILITER, QD
     Route: 048
     Dates: start: 20211015
  12. SULFAMETHOXAZOLE\TRIMETHOPRIM [Concomitant]
     Active Substance: SULFAMETHOXAZOLE\TRIMETHOPRIM
     Indication: Product used for unknown indication
     Dosage: 4.50 MILLILITER, 3/WEEK
     Route: 048
     Dates: start: 20211015
  13. TACROLIMUS [Concomitant]
     Active Substance: TACROLIMUS
     Indication: Transplant
     Dosage: 2.8 MILLIGRAM, BID
     Route: 048
     Dates: start: 20211103, end: 20211213
  14. TACROLIMUS [Concomitant]
     Active Substance: TACROLIMUS
     Dosage: 2.4 MILLIGRAM, BID
     Route: 048
     Dates: start: 20211213, end: 20220304
  15. TACROLIMUS [Concomitant]
     Active Substance: TACROLIMUS
     Dosage: 2 MILLIGRAM, BID
     Route: 048
     Dates: start: 20220304

REACTIONS (2)
  - Haemolytic transfusion reaction [Recovered/Resolved]
  - Anaemia [Recovered/Resolved]

NARRATIVE: CASE EVENT DATE: 20200918
